FAERS Safety Report 8050694-7 (Version None)
Quarter: 2012Q1

REPORT INFORMATION
  Report Type: 
  Country: None (occurrence: None)
  Receive Date: 20120117
  Receipt Date: 20120117
  Transmission Date: 20120608
  Serious: Yes (Other)
  Sender: FDA-Public Use
  Company Number: None

PATIENT
  Age: 45 Year
  Sex: Female
  Weight: 52.163 kg

DRUGS (2)
  1. XANAX [Concomitant]
     Route: 048
  2. MORPHINE [Suspect]
     Indication: PAIN IN EXTREMITY
     Dosage: TAKE ONE TABLET
     Route: 048
     Dates: start: 20120110, end: 20120114

REACTIONS (4)
  - BODY TEMPERATURE INCREASED [None]
  - VISUAL IMPAIRMENT [None]
  - HEADACHE [None]
  - TINNITUS [None]
